FAERS Safety Report 4531040-X (Version None)
Quarter: 2004Q4

REPORT INFORMATION
  Report Type: 
  Country: None (occurrence: None)
  Receive Date: 20041215
  Receipt Date: 20041202
  Transmission Date: 20050328
  Serious: Yes (Other)
  Sender: FDA-Public Use
  Company Number: 8008270

PATIENT
  Age: 32 Year
  Sex: Female

DRUGS (6)
  1. KEPPRA [Suspect]
     Dosage: 1000 MG 2/D
     Dates: start: 20040924, end: 20041102
  2. KEPPRA [Suspect]
     Dates: start: 20041103
  3. FURABID [Suspect]
     Indication: CYSTITIS
     Dosage: 100 MG/2D
     Dates: start: 20041026, end: 20041031
  4. LAMICTAL [Suspect]
     Dosage: 50 MG/D
     Dates: start: 20041006, end: 20041102
  5. LAMICTAL [Suspect]
     Dates: start: 20041103
  6. LEVONORGESTREL AND ETHINYL ESTRADIOL [Concomitant]

REACTIONS (4)
  - CONDITION AGGRAVATED [None]
  - CYSTITIS [None]
  - DRUG INTERACTION [None]
  - EPILEPSY [None]
